FAERS Safety Report 13395651 (Version 1)
Quarter: 2017Q2

REPORT INFORMATION
  Report Type: Spontaneous
  Country: US (occurrence: US)
  Receive Date: 20170402
  Receipt Date: 20170402
  Transmission Date: 20170830
  Serious: No
  Sender: FDA-Public Use
  Company Number: None

PATIENT
  Age: 41 Year
  Sex: Male
  Weight: 77 kg

DRUGS (1)
  1. LEVAQUIN [Suspect]
     Active Substance: LEVOFLOXACIN
     Indication: PROSTATITIS
     Dosage: ?          QUANTITY:14 TABLET(S);?
     Route: 048
     Dates: start: 20170314, end: 20170327

REACTIONS (5)
  - Pain in extremity [None]
  - Mydriasis [None]
  - Skin burning sensation [None]
  - Visual impairment [None]
  - Muscle twitching [None]

NARRATIVE: CASE EVENT DATE: 20170327
